FAERS Safety Report 10855420 (Version 1)
Quarter: 2015Q1

REPORT INFORMATION
  Report Type: Spontaneous
  Country: TR (occurrence: TR)
  Receive Date: 20150223
  Receipt Date: 20150223
  Transmission Date: 20150721
  Serious: Yes (Hospitalization, Congenital Anomaly)
  Sender: FDA-Public Use
  Company Number: TR-NOVOPROD-439050

PATIENT
  Sex: Female
  Weight: 3.47 kg

DRUGS (3)
  1. NOVORAPID [Suspect]
     Active Substance: INSULIN ASPART
     Indication: GESTATIONAL DIABETES
     Dosage: 12 U, QD
     Route: 064
     Dates: start: 20140830, end: 20150104
  2. DECAVIT                            /06014801/ [Concomitant]
     Indication: VITAMIN SUPPLEMENTATION
     Dosage: UNK
     Route: 064
     Dates: start: 201406, end: 20150104
  3. FOLBIOL [Concomitant]
     Active Substance: FOLIC ACID
     Indication: MINERAL SUPPLEMENTATION
     Dosage: 1X1
     Route: 064
     Dates: start: 201404, end: 20150104

REACTIONS (5)
  - Jaundice neonatal [Recovered/Resolved]
  - Developmental hip dysplasia [Unknown]
  - Caesarean section [None]
  - Premature baby [Unknown]
  - Foetal exposure during pregnancy [Recovered/Resolved]

NARRATIVE: CASE EVENT DATE: 20140830
